FAERS Safety Report 5721744-5 (Version None)
Quarter: 2008Q2

REPORT INFORMATION
  Report Type: 
  Country: None (occurrence: None)
  Receive Date: 20080429
  Receipt Date: 20070522
  Transmission Date: 20081010
  Serious: No
  Sender: FDA-Public Use
  Company Number: US-ASTRAZENECA-2007UW06998

PATIENT
  Age: 82 Year
  Sex: Female
  Weight: 68 kg

DRUGS (8)
  1. NEXIUM [Suspect]
     Indication: GASTROOESOPHAGEAL REFLUX DISEASE
     Route: 048
     Dates: start: 20050401
  2. SYNTHROID [Concomitant]
  3. PROZAC [Concomitant]
  4. KLONOPIN [Concomitant]
  5. MULTI-VITAMIN [Concomitant]
  6. ZOCOR [Concomitant]
  7. ASPIRIN [Concomitant]
  8. CALCIUM [Concomitant]

REACTIONS (2)
  - DIARRHOEA [None]
  - INCONTINENCE [None]
